FAERS Safety Report 15388473 (Version 1)
Quarter: 2018Q3

REPORT INFORMATION
  Report Type: Spontaneous
  Country: CA (occurrence: CA)
  Receive Date: 20180915
  Receipt Date: 20180915
  Transmission Date: 20181010
  Serious: Yes (Other)
  Sender: FDA-Public Use
  Company Number: CA-009507513-1809CAN001987

PATIENT
  Sex: Female
  Weight: 90.2 kg

DRUGS (6)
  1. LODALIS [Suspect]
     Active Substance: COLESEVELAM HYDROCHLORIDE
  2. REPATHA [Suspect]
     Active Substance: EVOLOCUMAB
     Indication: HYPERCHOLESTEROLAEMIA
     Dosage: 140 MG/ML,  QM
     Route: 065
  3. STATIN (UNSPECIFIED) [Suspect]
     Active Substance: UNSPECIFIED INGREDIENT
  4. EZETROL [Suspect]
     Active Substance: EZETIMIBE
     Route: 048
  5. REPATHA [Suspect]
     Active Substance: EVOLOCUMAB
     Indication: ARTERIOSCLEROSIS
     Dosage: 140 MG/ML
     Route: 065
     Dates: start: 20161114
  6. REPATHA [Suspect]
     Active Substance: EVOLOCUMAB
     Dosage: 140 MG, (2QWK)
     Route: 058
     Dates: start: 201701

REACTIONS (14)
  - Drug intolerance [Not Recovered/Not Resolved]
  - Muscle spasms [Not Recovered/Not Resolved]
  - Arteriosclerosis [Not Recovered/Not Resolved]
  - Pain in extremity [Unknown]
  - Blood pressure abnormal [Not Recovered/Not Resolved]
  - Pain [Not Recovered/Not Resolved]
  - Osteoarthritis [Not Recovered/Not Resolved]
  - Injection site pain [Not Recovered/Not Resolved]
  - Blood pressure increased [Not Recovered/Not Resolved]
  - Back pain [Not Recovered/Not Resolved]
  - Myalgia [Not Recovered/Not Resolved]
  - Hypercholesterolaemia [Not Recovered/Not Resolved]
  - Inflammation [Not Recovered/Not Resolved]
  - Sciatica [Unknown]

NARRATIVE: CASE EVENT DATE: 2017
